FAERS Safety Report 7586849-5 (Version None)
Quarter: 2011Q3

REPORT INFORMATION
  Report Type: 
  Country: None (occurrence: None)
  Receive Date: 20110701
  Receipt Date: 20110624
  Transmission Date: 20111222
  Serious: Yes (Hospitalization)
  Sender: FDA-Public Use
  Company Number: US-US-EMD SERONO, INC.-7067812

PATIENT
  Sex: Male

DRUGS (5)
  1. REBIF [Suspect]
     Route: 058
     Dates: start: 20110622
  2. UNSPECIFIED INHALERS [Concomitant]
     Indication: ASTHMA
  3. AMPYRA [Concomitant]
     Indication: GAIT DISTURBANCE
  4. REBIF [Suspect]
     Indication: MULTIPLE SCLEROSIS
     Route: 058
     Dates: start: 20050606, end: 20110303
  5. UROXATRAL [Concomitant]
     Indication: URINARY INCONTINENCE

REACTIONS (6)
  - PNEUMONIA [None]
  - BRONCHITIS [None]
  - HEADACHE [None]
  - MULTIPLE SCLEROSIS RELAPSE [None]
  - CHILLS [None]
  - WHITE BLOOD CELL DISORDER [None]
